FAERS Safety Report 22727733 (Version 3)
Quarter: 2025Q3

REPORT INFORMATION
  Report Type: Spontaneous
  Country: US (occurrence: US)
  Receive Date: 20230720
  Receipt Date: 20250813
  Transmission Date: 20251020
  Serious: Yes (Other)
  Sender: JOHNSON AND JOHNSON
  Company Number: US-JNJFOC-20230728598

PATIENT
  Sex: Female

DRUGS (1)
  1. ELMIRON [Suspect]
     Active Substance: PENTOSAN POLYSULFATE SODIUM
     Indication: Product used for unknown indication
     Route: 048
     Dates: start: 20110613, end: 20210323

REACTIONS (2)
  - Pigmentary maculopathy [Not Recovered/Not Resolved]
  - Retinal drusen [Unknown]

NARRATIVE: CASE EVENT DATE: 20210101
